FAERS Safety Report 4690904-7 (Version None)
Quarter: 2005Q2

REPORT INFORMATION
  Report Type: 
  Country: None (occurrence: None)
  Receive Date: 20050610
  Receipt Date: 20050523
  Transmission Date: 20051028
  Serious: Yes (Hospitalization)
  Sender: FDA-Public Use
  Company Number: B0382921A

PATIENT
  Age: 83 Year
  Sex: Female

DRUGS (1)
  1. DIGOXIN [Suspect]
     Indication: DRUG USE FOR UNKNOWN INDICATION

REACTIONS (14)
  - BLINDNESS UNILATERAL [None]
  - CARDIAC MURMUR [None]
  - CHEST DISCOMFORT [None]
  - COGNITIVE DETERIORATION [None]
  - DRY SKIN [None]
  - ELECTROCARDIOGRAM CHANGE [None]
  - FATIGUE [None]
  - HYPOKINESIA [None]
  - MUCOSAL DRYNESS [None]
  - NERVOUS SYSTEM DISORDER [None]
  - THERAPEUTIC AGENT TOXICITY [None]
  - VENTRICULAR ARRHYTHMIA [None]
  - VISUAL ACUITY REDUCED [None]
  - VOMITING [None]
